FAERS Safety Report 5945036-4 (Version None)
Quarter: 2008Q4

REPORT INFORMATION
  Report Type: 
  Country: None (occurrence: None)
  Receive Date: 20081107
  Receipt Date: 20081030
  Transmission Date: 20090506
  Serious: Yes (Other)
  Sender: FDA-Public Use
  Company Number: US-CELGENEUS-163-21880-08050788

PATIENT
  Sex: Male

DRUGS (6)
  1. REVLIMID [Suspect]
     Indication: MULTIPLE MYELOMA
     Route: 048
     Dates: start: 20070131, end: 20080508
  2. REVLIMID [Suspect]
     Dosage: 10MG X WK, 15MG X WK, 20MG X WK
     Route: 048
     Dates: start: 20080527, end: 20080624
  3. REVLIMID [Suspect]
     Dosage: 10MG X WK, 15MG X WK, 20MG X WK
     Route: 048
     Dates: end: 20080707
  4. ARANESP [Concomitant]
     Indication: DRUG USE FOR UNKNOWN INDICATION
     Route: 065
     Dates: start: 20060417, end: 20070705
  5. WARFARIN SODIUM [Concomitant]
     Indication: PROPHYLAXIS
     Route: 065
     Dates: start: 20060515
  6. ASPIRIN [Concomitant]
     Indication: PROPHYLAXIS
     Route: 065
     Dates: start: 20070705

REACTIONS (4)
  - BLOOD COUNT ABNORMAL [None]
  - DEEP VEIN THROMBOSIS [None]
  - NEUTROPENIA [None]
  - SQUAMOUS CELL CARCINOMA OF SKIN [None]
